FAERS Safety Report 21352747 (Version 1)
Quarter: 2022Q3

REPORT INFORMATION
  Report Type: Spontaneous
  Country: BR (occurrence: BR)
  Receive Date: 20220920
  Receipt Date: 20220920
  Transmission Date: 20221026
  Serious: Yes (Hospitalization)
  Sender: FDA-Public Use
  Company Number: BR-SA-SAC20220713000470

PATIENT
  Age: 48 Year
  Sex: Female
  Weight: 68 kg

DRUGS (7)
  1. THYMOGLOBULINE [Suspect]
     Active Substance: LAPINE T-LYMPHOCYTE IMMUNE GLOBULIN
     Indication: Immunosuppression
     Dosage: 200 MG, QD
     Route: 042
     Dates: start: 20220707, end: 20220708
  2. HYDROCORTISONE [Concomitant]
     Active Substance: HYDROCORTISONE
     Dosage: 300 MG 30 MINUTES
     Route: 042
     Dates: start: 20220707, end: 20220707
  3. CEFAZOLIN [Concomitant]
     Active Substance: CEFAZOLIN
     Dosage: UNK UNK, TID
     Dates: start: 20220707, end: 20220708
  4. MORPHINE [Concomitant]
     Active Substance: MORPHINE
     Dosage: QD
     Dates: start: 20220708, end: 20220708
  5. DIPYRONE [Concomitant]
     Active Substance: DIPYRONE
     Dosage: 2 ML
     Route: 042
     Dates: start: 20220707, end: 20220708
  6. DIPYRONE [Concomitant]
     Active Substance: DIPYRONE
     Dosage: 1G IV 06/06H
     Route: 042
  7. ISORDIL [Concomitant]
     Active Substance: ISOSORBIDE DINITRATE
     Dosage: QD
     Route: 060
     Dates: start: 20220708, end: 20220708

REACTIONS (4)
  - Myalgia [Recovered/Resolved]
  - Paraesthesia [Recovered/Resolved]
  - Pain in extremity [Recovered/Resolved]
  - Blood pressure decreased [Recovered/Resolved]

NARRATIVE: CASE EVENT DATE: 20220708
